FAERS Safety Report 6479861-0 (Version None)
Quarter: 2009Q4

REPORT INFORMATION
  Report Type: 
  Country: None (occurrence: None)
  Receive Date: 20091208
  Receipt Date: 20091130
  Transmission Date: 20100525
  Serious: Yes (Other)
  Sender: FDA-Public Use
  Company Number: FR-ROCHE-671768

PATIENT
  Age: 14 Year
  Sex: Female

DRUGS (4)
  1. MYCOPHENOLATE MOFETIL [Suspect]
     Dosage: DOSE: 33 MG/KG/DAY, 535MG/M2 TWICE DAY, WITHOUT A RECENT MYCOPHENOLATE MOFETIL AREA UNDER CURVE
     Route: 065
  2. PREDNISONE [Suspect]
     Route: 065
  3. TACROLIMUS [Suspect]
     Dosage: RESIDUAL LEVEL 10.4 UG/L
     Route: 065
  4. AZATHIOPRINE [Suspect]
     Route: 065

REACTIONS (2)
  - CHRONIC ALLOGRAFT NEPHROPATHY [None]
  - CRYPTOSPORIDIOSIS INFECTION [None]
